FAERS Safety Report 7329554-2 (Version None)
Quarter: 2011Q1

REPORT INFORMATION
  Report Type: 
  Country: None (occurrence: None)
  Receive Date: 20110303
  Receipt Date: 20110218
  Transmission Date: 20110831
  Serious: Yes (Other)
  Sender: FDA-Public Use
  Company Number: JP-CTI_01316_2011

PATIENT
  Age: 33 Year
  Sex: Female

DRUGS (1)
  1. MEIACT MS (CEFDITOREN PIVOXIL) [Suspect]
     Indication: PRODUCT USED FOR UNKNOWN INDICATION
     Dosage: DF
     Route: 048
     Dates: start: 20080801, end: 20080801

REACTIONS (1)
  - DRUG ERUPTION [None]
